FAERS Safety Report 16418990 (Version 2)
Quarter: 2019Q2

REPORT INFORMATION
  Report Type: Spontaneous
  Country: US (occurrence: US)
  Receive Date: 20190612
  Receipt Date: 20190621
  Transmission Date: 20190711
  Serious: Yes (Other)
  Sender: FDA-Public Use
  Company Number: US-ASTRAZENECA-2018SF22232

PATIENT
  Age: 562 Month
  Sex: Female

DRUGS (11)
  1. PRILOSEC [Suspect]
     Active Substance: OMEPRAZOLE MAGNESIUM
     Route: 048
     Dates: start: 20090209, end: 20170901
  2. ACYCLOVIR. [Concomitant]
     Active Substance: ACYCLOVIR
  3. METRONIDAZOLE. [Concomitant]
     Active Substance: METRONIDAZOLE
  4. FLUCONAZOLE. [Concomitant]
     Active Substance: FLUCONAZOLE
  5. FUROSEMIDE. [Concomitant]
     Active Substance: FUROSEMIDE
  6. PREVACID [Suspect]
     Active Substance: LANSOPRAZOLE
     Route: 065
     Dates: start: 20090101, end: 20170901
  7. PRILOSEC [Suspect]
     Active Substance: OMEPRAZOLE MAGNESIUM
     Route: 048
     Dates: start: 200901, end: 201709
  8. PREVACID [Suspect]
     Active Substance: LANSOPRAZOLE
     Route: 065
     Dates: start: 200901, end: 201709
  9. DIAZEPAM. [Concomitant]
     Active Substance: DIAZEPAM
  10. ZAFIRLUKAST. [Concomitant]
     Active Substance: ZAFIRLUKAST
  11. ALBUTEROL. [Concomitant]
     Active Substance: ALBUTEROL

REACTIONS (7)
  - Chronic kidney disease [Unknown]
  - Acute kidney injury [Unknown]
  - Renal injury [Unknown]
  - End stage renal disease [Unknown]
  - Tubulointerstitial nephritis [Unknown]
  - Renal failure [Unknown]
  - Dyspepsia [Unknown]

NARRATIVE: CASE EVENT DATE: 201702
